FAERS Safety Report 21434948 (Version 2)
Quarter: 2022Q4

REPORT INFORMATION
  Report Type: Report from Study
  Country: US (occurrence: US)
  Receive Date: 20221010
  Receipt Date: 20221013
  Transmission Date: 20230113
  Serious: Yes (Death)
  Sender: FDA-Public Use
  Company Number: US-NOVARTISPH-NVSC2022US227982

PATIENT
  Age: 90 Year

DRUGS (1)
  1. KISQALI [Suspect]
     Active Substance: RIBOCICLIB
     Indication: Product used for unknown indication
     Dosage: 200 MG, TID
     Route: 048
     Dates: start: 20220509

REACTIONS (1)
  - Death [Fatal]

NARRATIVE: CASE EVENT DATE: 20221007
